FAERS Safety Report 18725784 (Version 1)
Quarter: 2021Q1

REPORT INFORMATION
  Report Type: Spontaneous
  Country: SG (occurrence: SG)
  Receive Date: 20210111
  Receipt Date: 20210111
  Transmission Date: 20210419
  Serious: Yes (Other)
  Sender: FDA-Public Use
  Company Number: SG-ROCHE-2744291

PATIENT
  Age: 72 Year
  Sex: Male

DRUGS (13)
  1. LIPOSOMAL DOXORUBICIN [Suspect]
     Active Substance: DOXORUBICIN HYDROCHLORIDE
     Indication: DIFFUSE LARGE B-CELL LYMPHOMA
     Route: 065
  2. CISPLATIN. [Suspect]
     Active Substance: CISPLATIN
     Indication: DIFFUSE LARGE B-CELL LYMPHOMA
     Route: 065
     Dates: start: 201806, end: 201807
  3. IFOSFAMIDE. [Suspect]
     Active Substance: IFOSFAMIDE
     Indication: DIFFUSE LARGE B-CELL LYMPHOMA
     Route: 065
  4. CARBOPLATIN. [Suspect]
     Active Substance: CARBOPLATIN
     Indication: DIFFUSE LARGE B-CELL LYMPHOMA
     Route: 065
  5. VINCRISTINE [Suspect]
     Active Substance: VINCRISTINE
     Indication: DIFFUSE LARGE B-CELL LYMPHOMA
     Route: 065
  6. ETOPOSIDE. [Suspect]
     Active Substance: ETOPOSIDE
     Indication: DIFFUSE LARGE B-CELL LYMPHOMA
     Route: 065
  7. PREDNISOLONE. [Suspect]
     Active Substance: PREDNISOLONE
     Indication: DIFFUSE LARGE B-CELL LYMPHOMA
     Route: 065
  8. CYTARABINE. [Suspect]
     Active Substance: CYTARABINE
     Indication: DIFFUSE LARGE B-CELL LYMPHOMA
     Route: 065
     Dates: start: 201806, end: 201807
  9. ENDOXAN [Suspect]
     Active Substance: CYCLOPHOSPHAMIDE
     Indication: DIFFUSE LARGE B-CELL LYMPHOMA
     Route: 065
  10. RITUXIMAB. [Suspect]
     Active Substance: RITUXIMAB
     Indication: DIFFUSE LARGE B-CELL LYMPHOMA
     Route: 065
     Dates: start: 201806, end: 201807
  11. IMBRUVICA [Suspect]
     Active Substance: IBRUTINIB
     Indication: DIFFUSE LARGE B-CELL LYMPHOMA
     Route: 048
  12. GEMCITABINE. [Suspect]
     Active Substance: GEMCITABINE
     Indication: DIFFUSE LARGE B-CELL LYMPHOMA
     Route: 065
  13. DEXAMETHASONE. [Suspect]
     Active Substance: DEXAMETHASONE
     Indication: DIFFUSE LARGE B-CELL LYMPHOMA
     Route: 065
     Dates: start: 201806, end: 201807

REACTIONS (4)
  - Cellulitis [Unknown]
  - Ill-defined disorder [Unknown]
  - Diffuse large B-cell lymphoma refractory [Unknown]
  - Atrial fibrillation [Unknown]
